FAERS Safety Report 14707697 (Version 2)
Quarter: 2018Q2

REPORT INFORMATION
  Report Type: Report from Study
  Country: None (occurrence: US)
  Receive Date: 20180403
  Receipt Date: 20180409
  Transmission Date: 20180711
  Serious: No
  Sender: FDA-Public Use
  Company Number: US-ABBVIE-18K-163-2308520-00

PATIENT
  Age: 56 Year
  Sex: Male

DRUGS (1)
  1. HUMIRA [Suspect]
     Active Substance: ADALIMUMAB
     Indication: PSORIASIS
     Route: 058
     Dates: start: 2016, end: 2017

REACTIONS (2)
  - Psoriasis [Unknown]
  - Post procedural swelling [Not Recovered/Not Resolved]
